FAERS Safety Report 24691880 (Version 4)
Quarter: 2024Q4

REPORT INFORMATION
  Report Type: Spontaneous
  Country: DE (occurrence: DE)
  Receive Date: 20241203
  Receipt Date: 20241231
  Transmission Date: 20250115
  Serious: Yes (Life-Threatening, Other)
  Sender: MYLAN
  Company Number: DE-ROCHE-10000084302

PATIENT
  Age: 16 Year
  Sex: Male
  Weight: 74.95 kg

DRUGS (62)
  1. METHOTREXATE [Suspect]
     Active Substance: METHOTREXATE
     Indication: Non-Hodgkin^s lymphoma
     Dosage: 15 MILLIGRAM, TOTAL START DATE OF MOST RECENT DOSE OF STUDY DRUG PRIOR TO AE AND SAE IS 02-SEP-2024
     Route: 037
     Dates: start: 20240902
  2. METHOTREXATE [Suspect]
     Active Substance: METHOTREXATE
     Dosage: 15 MILLIGRAM, TOTAL START DATE OF MOST RECENT DOSE OF STUDY DRUG PRIOR TO AE AND SAE IS 02-SEP-2024
     Route: 037
     Dates: start: 20240902
  3. IFOSFAMIDE [Suspect]
     Active Substance: IFOSFAMIDE
     Indication: Non-Hodgkin^s lymphoma
     Dosage: 5.3 GRAM
     Route: 042
     Dates: start: 20240802
  4. IFOSFAMIDE [Suspect]
     Active Substance: IFOSFAMIDE
     Dosage: 5.6 GRAM (START DATE OF MOST RECENT DOSE OF STUDY DRUGPRIOR TO AE AND SAE ON 05-SEP-2024 DOSE LAST
     Route: 042
     Dates: start: 20240802
  5. LENOGRASTIM [Suspect]
     Active Substance: LENOGRASTIM
     Indication: Non-Hodgkin^s lymphoma
     Dosage: 300 MICROGRAM
     Route: 042
     Dates: start: 20240814
  6. LENOGRASTIM [Suspect]
     Active Substance: LENOGRASTIM
     Dosage: UNK
     Route: 042
     Dates: start: 20240814
  7. LENOGRASTIM [Suspect]
     Active Substance: LENOGRASTIM
     Dosage: UNK
     Route: 042
     Dates: start: 20240805
  8. LENOGRASTIM [Suspect]
     Active Substance: LENOGRASTIM
     Indication: Non-Hodgkin^s lymphoma
     Dosage: 300 MICROGRAM
     Route: 058
     Dates: start: 20240805
  9. TOCILIZUMAB [Suspect]
     Active Substance: TOCILIZUMAB
     Indication: Non-Hodgkin^s lymphoma
     Dosage: 460 MILLIGRAM, 1 TOTAL
     Route: 042
     Dates: start: 20240807
  10. TOCILIZUMAB [Suspect]
     Active Substance: TOCILIZUMAB
     Dosage: UNK
     Route: 042
     Dates: start: 20240807
  11. CYTARABINE [Suspect]
     Active Substance: CYTARABINE
     Indication: Non-Hodgkin^s lymphoma
     Dosage: START DATE OF MOST RECENT DOSE OF STUDY DRUGPRIOR TO AE AND SAE ON 02-SEP-2024
     Route: 037
     Dates: start: 20240902
  12. CYTARABINE [Suspect]
     Active Substance: CYTARABINE
     Indication: Non-Hodgkin^s lymphoma
     Dosage: UNK
     Route: 037
     Dates: start: 20240902
  13. HYDROCORTISONE [Suspect]
     Active Substance: HYDROCORTISONE
     Indication: Non-Hodgkin^s lymphoma
     Dosage: START DATE OF MOST RECENT DOSE OF STUDY DRUGPRIOR TO AE AND SAE ON 02-SEP-2024
     Route: 037
     Dates: start: 20240902
  14. HYDROCORTISONE [Suspect]
     Active Substance: HYDROCORTISONE
     Indication: Non-Hodgkin^s lymphoma
     Dosage: UNK
     Route: 037
     Dates: start: 20240902
  15. OBINUTUZUMAB [Suspect]
     Active Substance: OBINUTUZUMAB
     Indication: Non-Hodgkin^s lymphoma
     Dosage: 100 MILLIGRAM
     Route: 042
     Dates: start: 20240731
  16. OBINUTUZUMAB [Suspect]
     Active Substance: OBINUTUZUMAB
     Dosage: 900 MILLIGRAM (DOSE LAST STUDY DRUG ADMIN PRIOR AE 900 MGSTART DATE OF MOST RECENT DOSE OF STUDY
     Route: 042
     Dates: start: 20240801
  17. COLUMVI [Suspect]
     Active Substance: GLOFITAMAB-GXBM
     Indication: Non-Hodgkin^s lymphoma
     Dosage: UNK
     Route: 042
  18. COLUMVI [Suspect]
     Active Substance: GLOFITAMAB-GXBM
     Dosage: 2.5 MILLIGRAM
     Route: 042
     Dates: start: 20240807
  19. COLUMVI [Suspect]
     Active Substance: GLOFITAMAB-GXBM
     Dosage: 30 MILLIGRAM (START DATE OF MOST RECENT DOSE OF STUDY DRUGPRIOR TO AE AND SAE ON 28-AUG-2024 DOSE
     Route: 042
     Dates: start: 20240828
  20. MESNA [Suspect]
     Active Substance: MESNA
     Indication: Non-Hodgkin^s lymphoma
     Dosage: 5500 MILLIGRAM, 1 TOTAL
     Route: 042
     Dates: start: 20240802
  21. MESNA [Suspect]
     Active Substance: MESNA
     Dosage: 6000 MILLIGRAM (DOSE LAST STUDY DRUG ADMIN PRIOR AE 6000 MG START DATE OF MOST RECENT DOSE OF
     Route: 042
     Dates: start: 20240906
  22. MESNA [Suspect]
     Active Substance: MESNA
     Dosage: 1200 MILLIGRAM
     Route: 042
     Dates: start: 20240802
  23. MABTHERA [Suspect]
     Active Substance: RITUXIMAB
     Indication: Non-Hodgkin^s lymphoma
     Dosage: 700MG,TOTAL START AND END DATE OF MOST RECENT DOSE OF STUDY DRUG PRIOR TO AE AND SAE ON 02-SEP-2024
     Route: 042
     Dates: start: 20240902
  24. MABTHERA [Suspect]
     Active Substance: RITUXIMAB
     Dosage: UNK
     Route: 042
     Dates: start: 20240805
  25. MABTHERA [Suspect]
     Active Substance: RITUXIMAB
     Dosage: UNK
     Route: 042
     Dates: start: 20240902
  26. CARBOPLATIN [Suspect]
     Active Substance: CARBOPLATIN
     Indication: Non-Hodgkin^s lymphoma
     Dosage: 1120 MILLIGRAM, 1 TOTAL
     Route: 042
     Dates: start: 20240802
  27. CARBOPLATIN [Suspect]
     Active Substance: CARBOPLATIN
     Dosage: 1180 MILLIGRAM (DOSE LAST STUDY DRUG ADMIN PRIOR AE 1180 MGSTART DATE OF MOST RECENT DOSE OF
     Route: 042
     Dates: start: 20240802
  28. ETOPOSIDE [Suspect]
     Active Substance: ETOPOSIDE
     Indication: Non-Hodgkin^s lymphoma
     Dosage: 176 MILLIGRAM, 1 TOTAL
     Route: 042
     Dates: start: 20240802
  29. ETOPOSIDE [Suspect]
     Active Substance: ETOPOSIDE
     Dosage: 186 MILLIGRAM (DOSE LAST STUDY DRUG ADMIN PRIOR AE 186 MGSTART DATE OF MOST RECENT DOSE OF STUDY
     Route: 042
     Dates: start: 20240802
  30. METHYLPREDNISOLONE [Concomitant]
     Active Substance: METHYLPREDNISOLONE
     Indication: Product used for unknown indication
     Dosage: 120 MILLIGRAM
     Route: 042
     Dates: start: 20240828, end: 20240828
  31. ACETAMINOPHEN [Concomitant]
     Active Substance: ACETAMINOPHEN
     Indication: Headache
     Dosage: 750 MILLIGRAM
     Route: 042
     Dates: start: 20240727
  32. ACETAMINOPHEN [Concomitant]
     Active Substance: ACETAMINOPHEN
     Dosage: UNK
     Route: 065
     Dates: start: 20240727
  33. AMPHOTERICIN B [Concomitant]
     Active Substance: AMPHOTERICIN B
     Dosage: 100 MILLIGRAM, TID
     Route: 048
     Dates: start: 20240922
  34. CLEMASTINE [Concomitant]
     Active Substance: CLEMASTINE
     Dosage: 1.6 MILLIGRAM, PRN
     Route: 042
     Dates: start: 20240828, end: 20240902
  35. CAFFEINE [Concomitant]
     Active Substance: CAFFEINE
     Indication: Headache
     Dosage: 200 MILLIGRAM, PRN
     Route: 048
     Dates: start: 20240727, end: 20240925
  36. Tranexamsaure eberth [Concomitant]
     Indication: Epistaxis
     Dosage: UNK, PRN, 1 OTHER, PRN
     Route: 045
     Dates: start: 20240812
  37. HUMAN RED BLOOD CELL [Concomitant]
     Active Substance: HUMAN RED BLOOD CELL
     Indication: Anaemia
     Dosage: 1 OTHER, PRN
     Route: 042
     Dates: start: 20240805
  38. HUMAN RED BLOOD CELL [Concomitant]
     Active Substance: HUMAN RED BLOOD CELL
     Indication: Platelet count decreased
  39. PLATELETS [Concomitant]
     Active Substance: HUMAN PLATELET, ALLOGENIC
     Indication: Platelet count decreased
     Dosage: 1 OTHER, PRN
     Route: 042
     Dates: start: 20240804
  40. PLATELETS [Concomitant]
     Active Substance: HUMAN PLATELET, ALLOGENIC
     Indication: Anaemia
  41. MELATONIN [Concomitant]
     Active Substance: MELATONIN
     Dosage: 5 MILLIGRAM, QD
     Route: 048
     Dates: start: 20240806, end: 20240913
  42. LEVETIRACETAM [Concomitant]
     Active Substance: LEVETIRACETAM
     Indication: Encephalopathy
     Dosage: 1500 MILLIGRAM, QD
     Route: 048
     Dates: start: 20240924
  43. LEVETIRACETAM [Concomitant]
     Active Substance: LEVETIRACETAM
     Dosage: 1000 MILLIGRAM, BID
     Route: 042
     Dates: start: 20240902
  44. LEVETIRACETAM [Concomitant]
     Active Substance: LEVETIRACETAM
     Dosage: 1500 MILLIGRAM, BID
     Route: 042
     Dates: start: 20240903, end: 20240922
  45. LEVETIRACETAM [Concomitant]
     Active Substance: LEVETIRACETAM
     Dosage: 1500 MILLIGRAM
     Route: 042
     Dates: start: 20240923, end: 20240923
  46. LEVETIRACETAM [Concomitant]
     Active Substance: LEVETIRACETAM
     Dosage: 500 MILLIGRAM, BID
     Route: 042
     Dates: start: 20240805, end: 20240901
  47. LEVETIRACETAM [Concomitant]
     Active Substance: LEVETIRACETAM
     Indication: Encephalopathy
     Dosage: 1000 MILLIGRAM, BID
     Route: 042
     Dates: start: 20240902
  48. LEVETIRACETAM [Concomitant]
     Active Substance: LEVETIRACETAM
     Dosage: 1500 MILLIGRAM, BID
     Route: 042
     Dates: start: 20240903, end: 20240922
  49. LEVETIRACETAM [Concomitant]
     Active Substance: LEVETIRACETAM
     Dosage: 1500 MILLIGRAM
     Route: 042
     Dates: start: 20240923, end: 20240923
  50. LEVETIRACETAM [Concomitant]
     Active Substance: LEVETIRACETAM
     Dosage: 500 MILLIGRAM, BID
     Route: 042
     Dates: start: 20240805, end: 20240901
  51. LEVETIRACETAM [Concomitant]
     Active Substance: LEVETIRACETAM
     Dosage: 1500 MILLIGRAM, QD
     Route: 048
     Dates: start: 20240924
  52. TRANEXAMIC ACID [Concomitant]
     Active Substance: TRANEXAMIC ACID
     Indication: Epistaxis
     Dosage: 1 OTHER, PRN
     Route: 045
     Dates: start: 20240812
  53. ONDANSETRON [Concomitant]
     Active Substance: ONDANSETRON
     Dosage: 8 MILLIGRAM, TID
     Route: 042
     Dates: start: 20240902, end: 20240902
  54. ONDANSETRON [Concomitant]
     Active Substance: ONDANSETRON
     Dosage: 8 MILLIGRAM, BID
     Route: 042
     Dates: start: 20240903, end: 20240906
  55. ONDANSETRON [Concomitant]
     Active Substance: ONDANSETRON
     Dosage: 8 MILLIGRAM, QD
     Route: 042
     Dates: start: 20240907, end: 20240907
  56. ONDANSETRON [Concomitant]
     Active Substance: ONDANSETRON
     Dosage: 8 MILLIGRAM, BID
     Route: 042
     Dates: start: 20240903, end: 20240906
  57. SULFAMETHOXAZOLE\TRIMETHOPRIM [Concomitant]
     Active Substance: SULFAMETHOXAZOLE\TRIMETHOPRIM
     Dosage: 320 MILLIGRAM, BIW
     Route: 048
     Dates: start: 20240726, end: 20240913
  58. PANTOPRAZOLE [Concomitant]
     Active Substance: PANTOPRAZOLE
     Dosage: 40 MILLIGRAM, QD
     Route: 042
     Dates: start: 20240908, end: 20240915
  59. PANTOPRAZOLE [Concomitant]
     Active Substance: PANTOPRAZOLE
     Dosage: 40 MILLIGRAM, QD
     Route: 042
     Dates: start: 20240917, end: 20240923
  60. PANTOPRAZOLE [Concomitant]
     Active Substance: PANTOPRAZOLE
     Dosage: 40 MILLIGRAM, QD
     Route: 048
     Dates: start: 20240728, end: 20240907
  61. CAFFEINE [Concomitant]
     Active Substance: CAFFEINE
     Indication: Headache
     Dosage: 200 MILLIGRAM, PRN
     Route: 048
     Dates: start: 20240727, end: 20240925
  62. DEXAMETHASONE [Concomitant]
     Active Substance: DEXAMETHASONE
     Indication: Neoplasm malignant
     Dosage: UNK
     Route: 065
     Dates: start: 20241001

REACTIONS (3)
  - Sepsis [Recovered/Resolved]
  - Febrile neutropenia [Not Recovered/Not Resolved]
  - Off label use [Unknown]

NARRATIVE: CASE EVENT DATE: 20240916
